FAERS Safety Report 10157417 (Version 1)
Quarter: 2014Q2

REPORT INFORMATION
  Report Type: Spontaneous
  Country: US (occurrence: US)
  Receive Date: 20140507
  Receipt Date: 20140507
  Transmission Date: 20141212
  Serious: Yes (Other)
  Sender: FDA-Public Use
  Company Number: US-PFIZER INC-2014121938

PATIENT
  Age: 83 Year
  Sex: Female
  Weight: 65.76 kg

DRUGS (13)
  1. XELJANZ [Suspect]
     Indication: PSORIATIC ARTHROPATHY
     Dosage: 5 MG, 2X/DAY
     Route: 048
  2. ASPIRIN [Concomitant]
     Dosage: 81 MG, 1X/DAY
     Route: 048
  3. CATAPRES [Concomitant]
     Dosage: 0.1 MG, 2X/DAY
     Route: 048
  4. ENBREL [Concomitant]
     Dosage: 0.98 ML, UNK (50 MG/ML INJECT 1 MILLILITER BY SUBCUTANEOUS ROUTE EVERY OTHER WEEK)
     Route: 058
     Dates: start: 20130711, end: 20140212
  5. LORTAB [Concomitant]
     Dosage: UNK (10-500 MG TAKE 1 TABLET BY ORAL ROUTE DAILY AS NEEDED)
     Route: 048
  6. LUCENTIS INTRAVITREAL [Concomitant]
     Dosage: UNK
  7. SYNTHROID [Concomitant]
     Dosage: 75 UG, DAILY
     Route: 048
  8. TENORMIN [Concomitant]
     Dosage: 50 MG, DAILY (TAKE 2 TABLETS BY ORAL ROUTE DAILY FOR 1 DAY)
     Route: 048
     Dates: start: 20130711
  9. TRIAMTERENE HYDROCHLORIDE [Concomitant]
     Dosage: 37.5-25 MG/ONCE DAILY
     Route: 048
  10. TRIMETHOPRIM [Concomitant]
     Dosage: 100 MG, 1X/DAY (TAKE 1 TABLET BY ORAL ROUTE ONCE A DAY (AT BEDTIME))
     Route: 048
  11. VITAMIN B-12 [Concomitant]
     Dosage: UNK (INJECT 1 MILLILITER (1000 MCG) BY INTRAMUSCULAR ROUTE ONCE A MOUTH)
     Route: 030
  12. VITAMIN B-12 [Concomitant]
     Dosage: 1000 UG, DAILY
     Route: 060
  13. VITAMIN D-3 [Concomitant]
     Dosage: UNK (CHEW 1 TABLET BY ORAL ROUTE DAILY)
     Route: 048

REACTIONS (12)
  - Psoriatic arthropathy [Unknown]
  - Pulmonary arterial pressure increased [Unknown]
  - Psoriasis [Unknown]
  - Urinary tract infection [Unknown]
  - Pain in extremity [Unknown]
  - Dysstasia [Unknown]
  - Fatigue [Unknown]
  - Dyspnoea [Unknown]
  - Rash [Unknown]
  - Pruritus [Unknown]
  - Insomnia [Unknown]
  - Joint swelling [Unknown]
